FAERS Safety Report 20226656 (Version 2)
Quarter: 2022Q3

REPORT INFORMATION
  Report Type: Spontaneous
  Country: CA (occurrence: CA)
  Receive Date: 20211224
  Receipt Date: 20220725
  Transmission Date: 20221027
  Serious: No
  Sender: FDA-Public Use
  Company Number: CA-JAZZ-2021-CA-022877

PATIENT
  Age: 73 Year

DRUGS (1)
  1. VYXEOS [Suspect]
     Active Substance: CYTARABINE\DAUNORUBICIN
     Indication: Product used for unknown indication
     Dosage: UNK

REACTIONS (1)
  - Hypersensitivity pneumonitis [Unknown]
